FAERS Safety Report 6990431-8 (Version None)
Quarter: 2010Q3

REPORT INFORMATION
  Report Type: 
  Country: None (occurrence: None)
  Receive Date: 20100916
  Receipt Date: 20100609
  Transmission Date: 20110219
  Serious: Yes (Other)
  Sender: FDA-Public Use
  Company Number: IT-PFIZER INC-2010072820

PATIENT
  Sex: Male

DRUGS (3)
  1. LYRICA [Suspect]
     Indication: SPINAL CORD COMPRESSION
     Dosage: 75 MG, 2X/DAY
     Route: 048
     Dates: start: 20090901
  2. TEGRETOL [Suspect]
     Indication: NEURALGIA
     Dosage: 200 MG EVERY 2 DAYS
     Route: 048
  3. DULOXETINE [Suspect]
     Indication: DEPRESSION
     Dosage: 30 MG, 1X/DAY
     Route: 048
     Dates: start: 20091001

REACTIONS (1)
  - MULTIPLE DRUG OVERDOSE ACCIDENTAL [None]
